FAERS Safety Report 6903036-1 (Version None)
Quarter: 2010Q3

REPORT INFORMATION
  Report Type: 
  Country: None (occurrence: None)
  Receive Date: 20100803
  Receipt Date: 20080804
  Transmission Date: 20110219
  Serious: No
  Sender: FDA-Public Use
  Company Number: US-PFIZER INC-2008065937

PATIENT
  Sex: Female
  Weight: 79.545 kg

DRUGS (5)
  1. LYRICA [Suspect]
     Indication: NEUROPATHY PERIPHERAL
     Route: 048
     Dates: start: 20080618
  2. LUNESTA [Concomitant]
  3. PROTONIX [Concomitant]
  4. ZYRTEC [Concomitant]
  5. MIRALAX [Concomitant]

REACTIONS (1)
  - WEIGHT INCREASED [None]
